FAERS Safety Report 21725440 (Version 1)
Quarter: 2022Q4

REPORT INFORMATION
  Report Type: Report from Study
  Country: US (occurrence: US)
  Receive Date: 20221214
  Receipt Date: 20221214
  Transmission Date: 20230113
  Serious: Yes (Hospitalization, Other)
  Sender: FDA-Public Use
  Company Number: US-GILEAD-2022-0608671

PATIENT
  Age: 46 Year
  Sex: Male

DRUGS (3)
  1. AZTREONAM LYSINE [Suspect]
     Active Substance: AZTREONAM LYSINE
     Indication: Pseudomonas infection
     Dosage: 75 MG, TID EVERY 8 HOURS FOR 28 DAYS ON AND 28 DAYS OFF (ALTERNATE WITH TOBI)
     Route: 055
  2. AZTREONAM LYSINE [Suspect]
     Active Substance: AZTREONAM LYSINE
     Indication: Type 2 diabetes mellitus
  3. TOBI [Concomitant]
     Active Substance: TOBRAMYCIN

REACTIONS (2)
  - Pneumonia bacterial [Unknown]
  - Off label use [Not Recovered/Not Resolved]

NARRATIVE: CASE EVENT DATE: 20221101
